FAERS Safety Report 9318448 (Version 1)
Quarter: 2013Q2

REPORT INFORMATION
  Report Type: Spontaneous
  Country: US (occurrence: US)
  Receive Date: 20130530
  Receipt Date: 20130530
  Transmission Date: 20140414
  Serious: No
  Sender: FDA-Public Use
  Company Number: US-GLAXOSMITHKLINE-A1014621A

PATIENT
  Age: 37 Year
  Sex: Female

DRUGS (3)
  1. VENTOLIN [Suspect]
     Indication: ASTHMA EXERCISE INDUCED
     Dosage: 2PUFF FOUR TIMES PER DAY
     Route: 055
     Dates: start: 201209
  2. ALLERCLEAR [Concomitant]
     Indication: HYPERSENSITIVITY
  3. IMPLANON [Concomitant]
     Indication: CONTRACEPTION

REACTIONS (3)
  - Overdose [Recovering/Resolving]
  - Drug ineffective [Unknown]
  - Product quality issue [Unknown]
